FAERS Safety Report 16360614 (Version 1)
Quarter: 2019Q2

REPORT INFORMATION
  Report Type: Spontaneous
  Country: GB (occurrence: GB)
  Receive Date: 20190528
  Receipt Date: 20190528
  Transmission Date: 20190711
  Serious: Yes (Hospitalization)
  Sender: FDA-Public Use
  Company Number: GB-ACCORD-129809

PATIENT
  Age: 79 Year
  Sex: Female
  Weight: 85.5 kg

DRUGS (15)
  1. PREDNISOLONE. [Concomitant]
     Active Substance: PREDNISOLONE
  2. ENOXAPARIN [Concomitant]
     Active Substance: ENOXAPARIN
  3. LORATADINE. [Concomitant]
     Active Substance: LORATADINE
  4. OMEPRAZOLE. [Concomitant]
     Active Substance: OMEPRAZOLE
  5. ALENDRONATE SODIUM/ALENDRONIC ACID [Concomitant]
  6. IRON [Concomitant]
     Active Substance: IRON
  7. ATORVASTATIN [Concomitant]
     Active Substance: ATORVASTATIN
  8. TOLTERODINE [Concomitant]
     Active Substance: TOLTERODINE
  9. SERTRALINE [Concomitant]
     Active Substance: SERTRALINE HYDROCHLORIDE
  10. FUROSEMIDE. [Suspect]
     Active Substance: FUROSEMIDE
     Indication: OEDEMA PERIPHERAL
     Route: 048
     Dates: start: 20180801, end: 20190327
  11. RAMIPRIL. [Suspect]
     Active Substance: RAMIPRIL
     Indication: ESSENTIAL HYPERTENSION
     Dosage: AT NIGHT.
     Route: 048
     Dates: start: 20180501, end: 20190327
  12. BISOPROLOL [Concomitant]
     Active Substance: BISOPROLOL
  13. DOXYCYCLINE. [Concomitant]
     Active Substance: DOXYCYCLINE
  14. ADCAL-D3 [Concomitant]
     Active Substance: CALCIUM CARBONATE\CHOLECALCIFEROL
  15. BUPRENORPHINE. [Concomitant]
     Active Substance: BUPRENORPHINE

REACTIONS (3)
  - Dizziness [Unknown]
  - Lower respiratory tract infection [Unknown]
  - Orthostatic hypotension [Recovering/Resolving]

NARRATIVE: CASE EVENT DATE: 20190327
